FAERS Safety Report 9101206 (Version 1)
Quarter: 2013Q1

REPORT INFORMATION
  Report Type: Spontaneous
  Country: NO (occurrence: NO)
  Receive Date: 20130215
  Receipt Date: 20130215
  Transmission Date: 20140127
  Serious: Yes (Other)
  Sender: FDA-Public Use
  Company Number: NO-INCYTE CORPORATION-2013IN000300

PATIENT
  Sex: 0

DRUGS (1)
  1. JAKAVI [Suspect]
     Dosage: UNKNOWN
     Route: 065

REACTIONS (1)
  - Bone marrow failure [Unknown]
